FAERS Safety Report 21903279 (Version 6)
Quarter: 2023Q4

REPORT INFORMATION
  Report Type: Spontaneous
  Country: US (occurrence: US)
  Receive Date: 20230124
  Receipt Date: 20231227
  Transmission Date: 20240109
  Serious: No
  Sender: FDA-Public Use
  Company Number: US-SA-2023SA024369

PATIENT
  Age: 24 Year
  Sex: Female

DRUGS (1)
  1. DUPIXENT [Suspect]
     Active Substance: DUPILUMAB
     Indication: Eosinophilic oesophagitis
     Dosage: 300 MG, QW
     Route: 058
     Dates: start: 202210

REACTIONS (15)
  - Nerve injury [Unknown]
  - Root canal infection [Unknown]
  - Tongue disorder [Unknown]
  - Fibromyalgia [Unknown]
  - Immune system disorder [Unknown]
  - Pain in extremity [Unknown]
  - Myalgia [Unknown]
  - Erythema [Unknown]
  - Pruritus [Unknown]
  - Injection site pain [Unknown]
  - Injection site pruritus [Unknown]
  - Injection site swelling [Unknown]
  - Dry eye [Unknown]
  - Conjunctivitis [Unknown]
  - Arthralgia [Unknown]

NARRATIVE: CASE EVENT DATE: 20230404
